FAERS Safety Report 6669633-6 (Version None)
Quarter: 2010Q2

REPORT INFORMATION
  Report Type: 
  Country: None (occurrence: None)
  Receive Date: 20100406
  Receipt Date: 20100330
  Transmission Date: 20101027
  Serious: Yes (Hospitalization)
  Sender: FDA-Public Use
  Company Number: PE-PFIZER INC-2008049989

PATIENT
  Age: 73 Year
  Sex: Female
  Weight: 74 kg

DRUGS (16)
  1. BLINDED *IBUPROFEN [Suspect]
     Indication: RHEUMATOID ARTHRITIS
     Route: 048
     Dates: start: 20080606, end: 20080611
  2. NAPROXEN [Suspect]
     Indication: RHEUMATOID ARTHRITIS
     Route: 048
     Dates: start: 20080606, end: 20080611
  3. BLINDED *NO SUBJECT DRUG [Suspect]
     Indication: RHEUMATOID ARTHRITIS
     Route: 048
     Dates: start: 20080606, end: 20080611
  4. BLINDED *PLACEBO [Suspect]
     Indication: RHEUMATOID ARTHRITIS
     Route: 048
     Dates: start: 20080606, end: 20080611
  5. BLINDED CELECOXIB [Suspect]
     Indication: RHEUMATOID ARTHRITIS
     Route: 048
     Dates: start: 20080606, end: 20080611
  6. BLINDED IBUPROFEN [Suspect]
     Route: 048
     Dates: start: 20080606, end: 20080611
  7. NAPROXEN [Suspect]
     Route: 048
     Dates: start: 20080606, end: 20080611
  8. ESOMEPRAZOLE [Suspect]
     Dosage: 20 MG, 1X/DAY
     Route: 048
     Dates: start: 20080606, end: 20080611
  9. RISEDRONATE SODIUM [Concomitant]
     Route: 048
     Dates: start: 20070301, end: 20080611
  10. CALCIUM CARBONATE [Concomitant]
     Route: 048
     Dates: start: 20070301, end: 20080611
  11. VITAMIN D [Concomitant]
     Route: 048
     Dates: start: 20070301, end: 20080611
  12. PREDNISONE TAB [Concomitant]
     Route: 048
     Dates: start: 20000101, end: 20080611
  13. LEFLUNOMIDE [Concomitant]
     Route: 048
     Dates: start: 20020101, end: 20080611
  14. ENALAPRIL MALEATE [Concomitant]
     Route: 048
     Dates: start: 20050601, end: 20080611
  15. SIMVASTATIN [Concomitant]
     Route: 048
     Dates: start: 20060301, end: 20080611
  16. CELECOXIB [Concomitant]
     Dosage: UNK
     Route: 048
     Dates: start: 20050101, end: 20080526

REACTIONS (2)
  - ATRIAL FIBRILLATION [None]
  - MYOCARDIAL INFARCTION [None]
